FAERS Safety Report 17315916 (Version 9)
Quarter: 2022Q2

REPORT INFORMATION
  Report Type: Spontaneous
  Country: US (occurrence: US)
  Receive Date: 20200124
  Receipt Date: 20220526
  Transmission Date: 20220721
  Serious: No
  Sender: FDA-Public Use
  Company Number: US-PFIZER INC-2018520926

PATIENT
  Age: 72 Year
  Sex: Female
  Weight: 119.29 kg

DRUGS (4)
  1. TOVIAZ [Suspect]
     Active Substance: FESOTERODINE FUMARATE
     Indication: Stress urinary incontinence
     Dosage: 4 MG, ALTERNATE DAY (TAKE 1 TABLET BY MOUTH AS DIRECTED ALTERNATING WITH THE 8 MG TABLET)
     Route: 048
  2. TOVIAZ [Suspect]
     Active Substance: FESOTERODINE FUMARATE
     Indication: Urinary incontinence
     Dosage: 8 MG, ALTERNATE DAY (TAKE 1 TABLET BY MOUTH AS DIRECTED ALTERNATING WITH THE 8 MG TABLET)
     Route: 048
  3. TOVIAZ [Suspect]
     Active Substance: FESOTERODINE FUMARATE
     Dosage: 12 MG, ALTERNATE DAY (8MG IN MORNING, 4MG IN EVENING)
     Route: 048
  4. TOVIAZ [Suspect]
     Active Substance: FESOTERODINE FUMARATE
     Dosage: 8 MG, TWICE DAILY

REACTIONS (3)
  - Drug ineffective [Unknown]
  - Off label use [Unknown]
  - Hypoacusis [Unknown]
